FAERS Safety Report 6086689-2 (Version None)
Quarter: 2009Q1

REPORT INFORMATION
  Report Type: 
  Country: None (occurrence: None)
  Receive Date: 20090223
  Receipt Date: 20070314
  Transmission Date: 20090719
  Serious: No
  Sender: FDA-Public Use
  Company Number: GB-PFIZER INC-2007013592

PATIENT
  Sex: Male
  Weight: 75.3 kg

DRUGS (4)
  1. SUNITINIB MALATE [Suspect]
     Indication: RENAL CELL CARCINOMA
     Route: 048
     Dates: start: 20060713
  2. E45 [Concomitant]
     Dates: start: 20060726
  3. OMEPRAZOLE [Concomitant]
     Route: 048
     Dates: start: 20050101
  4. CHLORPHENTERMINE 65MG TAB [Concomitant]
     Route: 048
     Dates: start: 20061129

REACTIONS (1)
  - NO ADVERSE EVENT [None]
